FAERS Safety Report 8447762-4 (Version None)
Quarter: 2012Q2

REPORT INFORMATION
  Report Type: 
  Country: None (occurrence: None)
  Receive Date: 20120619
  Receipt Date: 20120611
  Transmission Date: 20120825
  Serious: No
  Sender: FDA-Public Use
  Company Number: US-BAYER-2012-058036

PATIENT
  Sex: Female

DRUGS (2)
  1. MENOSTAR [Suspect]
     Dosage: UNK UNK, OW
     Route: 062
     Dates: start: 20080101, end: 20110101
  2. MENOSTAR [Suspect]
     Dosage: UNK
     Dates: start: 20111001

REACTIONS (1)
  - ALOPECIA [None]
